FAERS Safety Report 5286611-2 (Version None)
Quarter: 2007Q1

REPORT INFORMATION
  Report Type: 
  Country: None (occurrence: None)
  Receive Date: 20070116
  Receipt Date: 20061120
  Transmission Date: 20070707
  Serious: No
  Sender: FDA-Public Use
  Company Number: 2006SP004133

PATIENT
  Age: 80 Year
  Sex: Male
  Weight: 84.8226 kg

DRUGS (5)
  1. LUNESTA [Suspect]
     Indication: INSOMNIA
     Dosage: 3 MG; 1X; ORAL
     Route: 048
     Dates: start: 20061113, end: 20061113
  2. ASPIRIN [Concomitant]
  3. VITAMINS [Concomitant]
  4. HYDROCODONE [Concomitant]
  5. SIMVASTATIN [Concomitant]

REACTIONS (2)
  - NERVOUSNESS [None]
  - PARADOXICAL DRUG REACTION [None]
